FAERS Safety Report 23065803 (Version 2)
Quarter: 2024Q2

REPORT INFORMATION
  Report Type: Report from Study
  Country: GB (occurrence: GB)
  Receive Date: 20231014
  Receipt Date: 20240624
  Transmission Date: 20240716
  Serious: Yes (Hospitalization)
  Sender: FDA-Public Use
  Company Number: GB-002147023-NVSC2023GB009646

PATIENT
  Age: 67 Year
  Sex: Male

DRUGS (1)
  1. MAYZENT [Suspect]
     Active Substance: SIPONIMOD
     Indication: Secondary progressive multiple sclerosis
     Dosage: 2 MG, QD
     Route: 048
     Dates: start: 20221214

REACTIONS (10)
  - Urinary tract infection [Unknown]
  - Tremor [Recovered/Resolved]
  - Heart rate decreased [Unknown]
  - Fluid retention [Recovering/Resolving]
  - Dizziness [Recovered/Resolved]
  - Peripheral coldness [Not Recovered/Not Resolved]
  - Vision blurred [Not Recovered/Not Resolved]
  - Balance disorder [Not Recovered/Not Resolved]
  - Mobility decreased [Not Recovered/Not Resolved]
  - Erythema [Not Recovered/Not Resolved]
